FAERS Safety Report 21176604 (Version 1)
Quarter: 2022Q3

REPORT INFORMATION
  Report Type: Spontaneous
  Country: US (occurrence: None)
  Receive Date: 20220804
  Receipt Date: 20220804
  Transmission Date: 20221026
  Serious: Yes (Disabling)
  Sender: FDA-Public Use
  Company Number: None

PATIENT
  Age: 41 Year
  Sex: Male
  Weight: 123.75 kg

DRUGS (10)
  1. ZONISAMIDE [Suspect]
     Active Substance: ZONISAMIDE
     Indication: Seizure
     Dates: start: 20211228, end: 20220331
  2. ZONISAMIDE [Suspect]
     Active Substance: ZONISAMIDE
     Indication: Migraine
  3. LOSARTAN [Concomitant]
     Active Substance: LOSARTAN
  4. TRUVADA [Concomitant]
     Active Substance: EMTRICITABINE\TENOFOVIR DISOPROXIL FUMARATE
  5. KEPPRA [Concomitant]
     Active Substance: LEVETIRACETAM
  6. HYDROCHLOROTHIAZIDE [Concomitant]
     Active Substance: HYDROCHLOROTHIAZIDE
  7. AMELODOPINE [Concomitant]
  8. MULTI VITAMIN [Concomitant]
  9. ZYRTEC [Concomitant]
     Active Substance: CETIRIZINE HYDROCHLORIDE
  10. OMEPRAZOLE [Concomitant]
     Active Substance: OMEPRAZOLE

REACTIONS (15)
  - Chills [None]
  - Pain [None]
  - Seizure [None]
  - Loss of consciousness [None]
  - Impaired driving ability [None]
  - Fall [None]
  - Muscle spasms [None]
  - Injury [None]
  - Pain [None]
  - Impaired work ability [None]
  - Stress [None]
  - Economic problem [None]
  - Recalled product administered [None]
  - Chest pain [None]
  - Hypertension [None]

NARRATIVE: CASE EVENT DATE: 20220128
